FAERS Safety Report 18296675 (Version 2)
Quarter: 2020Q4

REPORT INFORMATION
  Report Type: Spontaneous
  Country: CA (occurrence: CA)
  Receive Date: 20200922
  Receipt Date: 20201009
  Transmission Date: 20210113
  Serious: Yes (Life-Threatening, Other)
  Sender: FDA-Public Use
  Company Number: CA-TEVA-2020-CA-1830067

PATIENT
  Age: 4 Year
  Sex: Male
  Weight: 15 kg

DRUGS (26)
  1. LANSOPRAZOLE. [Concomitant]
     Active Substance: LANSOPRAZOLE
  2. ONDANSETRON [Concomitant]
     Active Substance: ONDANSETRON
  3. IMATINIB. [Suspect]
     Active Substance: IMATINIB MESYLATE
     Indication: ACUTE LYMPHOCYTIC LEUKAEMIA
     Dosage: 200 MILLIGRAM DAILY;
     Route: 048
  4. CYTARABINE INJECTION [Suspect]
     Active Substance: CYTARABINE
     Indication: ACUTE LYMPHOCYTIC LEUKAEMIA
     Dosage: 2560 MILLIGRAM DAILY;
     Route: 042
  5. CICLESONIDE [Concomitant]
     Active Substance: CICLESONIDE
  6. LEUCOVORIN. [Concomitant]
     Active Substance: LEUCOVORIN
  7. METOCLOPRAMIDE. [Concomitant]
     Active Substance: METOCLOPRAMIDE
  8. CYTARABINE INJECTION [Suspect]
     Active Substance: CYTARABINE
     Route: 037
  9. POTASSIUM [Concomitant]
     Active Substance: POTASSIUM
  10. RANITIDINE. [Concomitant]
     Active Substance: RANITIDINE
  11. CYCLOPHOSPHAMIDE. [Suspect]
     Active Substance: CYCLOPHOSPHAMIDE
     Indication: ACUTE LYMPHOCYTIC LEUKAEMIA
     Route: 042
  12. HYDROCORTISONE. [Suspect]
     Active Substance: HYDROCORTISONE
     Indication: ACUTE LYMPHOCYTIC LEUKAEMIA
     Route: 037
  13. CEFTAZIDIME. [Concomitant]
     Active Substance: CEFTAZIDIME
  14. MAGNESIUM [Concomitant]
     Active Substance: MAGNESIUM
  15. VINCRISTINE SULFATE. [Suspect]
     Active Substance: VINCRISTINE SULFATE
     Indication: ACUTE LYMPHOCYTIC LEUKAEMIA
     Route: 041
  16. L-ASPARAGINASE [Suspect]
     Active Substance: ASPARAGINASE
     Route: 041
  17. FAMOTIDINE. [Concomitant]
     Active Substance: FAMOTIDINE
  18. SODIUM [Concomitant]
     Active Substance: SODIUM
  19. MELATONIN [Concomitant]
     Active Substance: MELATONIN
  20. SALBUTAMOL [Concomitant]
     Active Substance: ALBUTEROL
  21. METHOTREXATE. [Suspect]
     Active Substance: METHOTREXATE
     Indication: ACUTE LYMPHOCYTIC LEUKAEMIA
     Route: 042
  22. METHOTREXATE. [Suspect]
     Active Substance: METHOTREXATE
     Route: 037
  23. AMLODIPINE [Concomitant]
     Active Substance: AMLODIPINE BESYLATE
  24. DEXAMETHASONE. [Concomitant]
     Active Substance: DEXAMETHASONE
     Route: 065
  25. DIMENHYDRINATE. [Concomitant]
     Active Substance: DIMENHYDRINATE
  26. DIPHENHYDRAMINE. [Concomitant]
     Active Substance: DIPHENHYDRAMINE

REACTIONS (3)
  - Aplastic anaemia [Recovered/Resolved]
  - Stomatitis [Recovered/Resolved]
  - Decreased appetite [Recovered/Resolved]
